FAERS Safety Report 4594167-2 (Version None)
Quarter: 2005Q1

REPORT INFORMATION
  Report Type: 
  Country: None (occurrence: None)
  Receive Date: 20050301
  Receipt Date: 20040827
  Transmission Date: 20050727
  Serious: Yes (Death)
  Sender: FDA-Public Use
  Company Number: NO-GLAXOSMITHKLINE-B0343818A

PATIENT
  Age: 81 Year
  Sex: Female
  Weight: 48 kg

DRUGS (9)
  1. SERETIDE [Suspect]
     Indication: CHRONIC OBSTRUCTIVE PULMONARY DISEASE
     Route: 055
     Dates: start: 20031009
  2. CIPRAMIL [Suspect]
     Indication: DEPRESSION
     Dates: start: 20030723
  3. FUROSEMIDE [Suspect]
     Indication: HYPERTENSION
     Route: 048
  4. COZAAR [Suspect]
     Indication: HYPERTENSION
     Route: 048
     Dates: start: 20030912
  5. EMCONCOR [Suspect]
     Indication: HYPERTENSION
     Route: 048
     Dates: start: 20030611
  6. FOSAMAX [Suspect]
  7. CALCIGRAN FORTE [Suspect]
  8. SALMETEROL [Concomitant]
     Indication: CHRONIC OBSTRUCTIVE PULMONARY DISEASE
     Dosage: 50MCG TWICE PER DAY
     Route: 055
     Dates: start: 20030923, end: 20031008
  9. PREDNISOLONE [Concomitant]
     Indication: CHRONIC OBSTRUCTIVE PULMONARY DISEASE
     Dosage: 30MG PER DAY
     Route: 048
     Dates: start: 20030923, end: 20031008

REACTIONS (4)
  - CONFUSIONAL STATE [None]
  - DEPRESSION [None]
  - SUDDEN DEATH [None]
  - VENTRICULAR FIBRILLATION [None]
